FAERS Safety Report 8890834 (Version 2)
Quarter: 2012Q4

REPORT INFORMATION
  Report Type: 
  Country: US (occurrence: US)
  Receive Date: 20121106
  Receipt Date: 20121112
  Transmission Date: 20130627
  Serious: Yes (Other)
  Sender: FDA-Public Use
  Company Number: CHPA2012US022913

PATIENT
  Age: 36 Year
  Sex: Female

DRUGS (1)
  1. CONTROL PLP [Suspect]
     Indication: SMOKING CESSATION THERAPY
     Dosage: 21 mg, QD
     Route: 062
     Dates: start: 20120914

REACTIONS (7)
  - Bipolar I disorder [Not Recovered/Not Resolved]
  - Urinary incontinence [Recovered/Resolved]
  - Bronchitis [Not Recovered/Not Resolved]
  - Sleep apnoea syndrome [Not Recovered/Not Resolved]
  - Treatment noncompliance [Unknown]
  - Incorrect drug administration duration [Unknown]
  - Overdose [Unknown]
